FAERS Safety Report 13740605 (Version 1)
Quarter: 2017Q3

REPORT INFORMATION
  Report Type: Spontaneous
  Country: IN (occurrence: IN)
  Receive Date: 20170711
  Receipt Date: 20170711
  Transmission Date: 20171127
  Serious: Yes (Other)
  Sender: FDA-Public Use
  Company Number: IN-STRIDES ARCOLAB LIMITED-2017SP010660

PATIENT

DRUGS (1)
  1. TACROLIMUS. [Suspect]
     Active Substance: TACROLIMUS
     Indication: LIVER TRANSPLANT
     Dosage: UNK
     Route: 065

REACTIONS (7)
  - Freezing phenomenon [Recovered/Resolved]
  - Repetitive speech [Recovered/Resolved]
  - Tremor [Recovered/Resolved]
  - Bradykinesia [Recovered/Resolved]
  - Fall [Recovered/Resolved]
  - Parkinsonism [Recovered/Resolved]
  - Muscle rigidity [Recovered/Resolved]
